FAERS Safety Report 9997566 (Version 1)
Quarter: 2014Q1

REPORT INFORMATION
  Report Type: Spontaneous
  Country: US (occurrence: None)
  Receive Date: 20140225
  Receipt Date: 20140225
  Transmission Date: 20141002
  Serious: Yes (Hospitalization, Other)
  Sender: FDA-Public Use
  Company Number: 2013-375

PATIENT
  Age: 62 Year
  Sex: Female
  Weight: 58 kg

DRUGS (8)
  1. PRIALT (ZICONOTIDE) INTRATHECAL INFUSION [Suspect]
     Indication: POST LAMINECTOMY SYNDROME
     Route: 037
  2. PRIALT (ZICONOTIDE) INTRATHECAL INFUSION [Suspect]
     Indication: PAIN
     Route: 037
  3. CLONIDINE (CLONIDINE) INJECTION [Suspect]
     Indication: POST LAMINECTOMY SYNDROME
     Route: 037
  4. CLONIDINE (CLONIDINE) INJECTION [Suspect]
     Indication: PAIN
     Route: 037
  5. MORPHINE SULFATE (MORPHINE SULFATE) INJECTION [Suspect]
     Indication: POST LAMINECTOMY SYNDROME
     Route: 037
  6. MORPHINE SULFATE (MORPHINE SULFATE) INJECTION [Suspect]
     Indication: PAIN
     Route: 037
  7. BUPIVACAINE HYDROCHLORIDE [Suspect]
     Indication: POST LAMINECTOMY SYNDROME
     Route: 037
  8. BUPIVACAINE HYDROCHLORIDE [Suspect]
     Indication: PAIN
     Route: 037

REACTIONS (4)
  - Drug withdrawal syndrome [None]
  - Overdose [None]
  - Weight decreased [None]
  - Drug ineffective [None]
